FAERS Safety Report 5995032-6 (Version None)
Quarter: 2008Q4

REPORT INFORMATION
  Report Type: 
  Country: None (occurrence: None)
  Receive Date: 20081212
  Receipt Date: 20080920
  Transmission Date: 20090506
  Serious: No
  Sender: FDA-Public Use
  Company Number: US-ABBOTT-08P-163-0477436-00

PATIENT
  Sex: Male

DRUGS (1)
  1. HUMIRA [Suspect]
     Indication: PSORIATIC ARTHROPATHY
     Dates: start: 20080810

REACTIONS (5)
  - DRUG DOSE OMISSION [None]
  - HEADACHE [None]
  - HYPERSENSITIVITY [None]
  - PHARYNGEAL ERYTHEMA [None]
  - SINUSITIS [None]
